FAERS Safety Report 7224173-0 (Version None)
Quarter: 2011Q1

REPORT INFORMATION
  Report Type: 
  Country: None (occurrence: None)
  Receive Date: 20110106
  Receipt Date: 20110106
  Transmission Date: 20110831
  Serious: Yes (Death, Life-Threatening, Hospitalization, Other)
  Sender: FDA-Public Use
  Company Number: None

PATIENT
  Age: 81 Year
  Sex: Female
  Weight: 60.782 kg

DRUGS (1)
  1. DARVOCET-N 100 [Suspect]
     Indication: PROCEDURAL PAIN
     Dosage: EVERY 4 HOURS PO
     Route: 048
     Dates: start: 20101026, end: 20101112

REACTIONS (8)
  - APHASIA [None]
  - GAIT DISTURBANCE [None]
  - CARDIO-RESPIRATORY ARREST [None]
  - FATIGUE [None]
  - HYPOPHAGIA [None]
  - PULMONARY OEDEMA [None]
  - CONFUSIONAL STATE [None]
  - PANIC ATTACK [None]
